FAERS Safety Report 15906504 (Version 1)
Quarter: 2019Q1

REPORT INFORMATION
  Report Type: Spontaneous
  Country: US (occurrence: US)
  Receive Date: 20190204
  Receipt Date: 20190204
  Transmission Date: 20190417
  Serious: No
  Sender: FDA-Public Use
  Company Number: US-SA-2019SA025734

PATIENT

DRUGS (3)
  1. PREGABALIN. [Suspect]
     Active Substance: PREGABALIN
     Dosage: 1 DF, TID
     Route: 048
  2. AMBIEN [Suspect]
     Active Substance: ZOLPIDEM TARTRATE
  3. MORPHINE SALT NOT SPECIFIED [Suspect]
     Active Substance: MORPHINE

REACTIONS (4)
  - Hallucination [Unknown]
  - Diabetic neuropathy [Unknown]
  - Pruritus [Unknown]
  - Fibromyalgia [Unknown]
